FAERS Safety Report 7309066-2 (Version None)
Quarter: 2011Q1

REPORT INFORMATION
  Report Type: 
  Country: None (occurrence: None)
  Receive Date: 20110223
  Receipt Date: 20110209
  Transmission Date: 20110831
  Serious: Yes (Death)
  Sender: FDA-Public Use
  Company Number: US-TYCO HEALTHCARE/MALLINCKRODT-T201100317

PATIENT
  Age: 27 Year
  Sex: Male

DRUGS (2)
  1. CARBON MONOXIDE [Suspect]
  2. FENTANYL-100 [Suspect]

REACTIONS (1)
  - CARDIO-RESPIRATORY ARREST [None]
